FAERS Safety Report 15721892 (Version 1)
Quarter: 2018Q4

REPORT INFORMATION
  Report Type: Spontaneous
  Country: US (occurrence: US)
  Receive Date: 20181129
  Receipt Date: 20181129
  Transmission Date: 20190205
  Serious: Yes (Death)
  Sender: FDA-Public Use
  Company Number: None

PATIENT
  Age: 92 Year
  Sex: Male

DRUGS (10)
  1. SOTALOL. [Concomitant]
     Active Substance: SOTALOL
  2. LISINOPRIL. [Concomitant]
     Active Substance: LISINOPRIL
  3. IMBRUVICA [Concomitant]
     Active Substance: IBRUTINIB
  4. FUROSEMIDE. [Concomitant]
     Active Substance: FUROSEMIDE
  5. ATORVASTATIN [Concomitant]
     Active Substance: ATORVASTATIN
  6. PREDNISONE. [Concomitant]
     Active Substance: PREDNISONE
  7. ZYTIGA [Suspect]
     Active Substance: ABIRATERONE ACETATE
     Indication: PROSTATE CANCER
     Route: 048
     Dates: start: 20181003, end: 20181126
  8. KEPPRA [Concomitant]
     Active Substance: LEVETIRACETAM
  9. CYCLOBENZAPRINE. [Concomitant]
     Active Substance: CYCLOBENZAPRINE
  10. CARBIDOPA-LEVODOPA [Concomitant]
     Active Substance: CARBIDOPA\LEVODOPA

REACTIONS (1)
  - Death [None]

NARRATIVE: CASE EVENT DATE: 20181126
